FAERS Safety Report 7283819 (Version 2)
Quarter: 2013Q3

REPORT INFORMATION
  Report Type: Spontaneous
  Country: US (occurrence: US)
  Receive Date: 20100218
  Receipt Date: 20130814
  Transmission Date: 20140515
  Serious: Yes (Other)
  Sender: FDA-Public Use
  Company Number: US-ROCHE-649302

PATIENT
  Age: 39 Year
  Sex: Female
  Weight: 77.1 kg

DRUGS (5)
  1. ACCUTANE [Suspect]
     Indication: ACNE CYSTIC
     Route: 048
     Dates: start: 20001129, end: 200103
  2. PAXIL [Concomitant]
     Indication: OBSESSIVE-COMPULSIVE DISORDER
  3. PHENTERMINE [Concomitant]
     Indication: WEIGHT CONTROL
  4. AUGMENTIN [Concomitant]
     Indication: INFECTION
  5. CELEXA [Concomitant]
     Indication: DEPRESSION
     Dosage: DOSE DECREASED
     Route: 065

REACTIONS (16)
  - Crohn^s disease [Unknown]
  - Inflammatory bowel disease [Unknown]
  - Gastrooesophageal reflux disease [Unknown]
  - Obsessive-compulsive disorder [Unknown]
  - Depression [Unknown]
  - Anxiety [Unknown]
  - Pain [Unknown]
  - Lethargy [Unknown]
  - Headache [Unknown]
  - Xerosis [Unknown]
  - Arthralgia [Unknown]
  - Epistaxis [Unknown]
  - Eczema [Unknown]
  - Blood cholesterol increased [Recovered/Resolved]
  - Pruritus [Unknown]
  - Pharyngitis [Unknown]
